FAERS Safety Report 7800016-9 (Version None)
Quarter: 2011Q4

REPORT INFORMATION
  Report Type: 
  Country: None (occurrence: None)
  Receive Date: 20111006
  Receipt Date: 20110929
  Transmission Date: 20120403
  Serious: Yes (Other)
  Sender: FDA-Public Use
  Company Number: GB-BAYER-2011-094685

PATIENT
  Age: 44 Year
  Sex: Female
  Weight: 62 kg

DRUGS (7)
  1. ACETAMINOPHEN AND CODEINE PHOSPHATE [Concomitant]
     Dosage: UNK
     Dates: start: 20110918
  2. TRAMADOL HCL [Concomitant]
  3. DOMPERIDONE [Concomitant]
     Dosage: UNK
     Dates: start: 20110920
  4. OMEPRAZOLE [Concomitant]
     Dosage: UNK
     Dates: start: 20110920
  5. ACETAMINOPHEN [Concomitant]
     Dosage: UNK
     Dates: start: 20110707
  6. NAPROXEN SODIUM [Suspect]
     Dosage: UNK
     Dates: start: 20110918
  7. CEPHALEXIN [Concomitant]
     Dosage: UNK
     Dates: start: 20110918

REACTIONS (2)
  - ABDOMINAL PAIN UPPER [None]
  - HAEMATEMESIS [None]
